FAERS Safety Report 6301221-3 (Version None)
Quarter: 2009Q3

REPORT INFORMATION
  Report Type: 
  Country: None (occurrence: None)
  Receive Date: 20090807
  Receipt Date: 20090730
  Transmission Date: 20100115
  Serious: No
  Sender: FDA-Public Use
  Company Number: JP-ASTRAZENECA-2009AP01802

PATIENT
  Age: 62 Year
  Sex: Female
  Weight: 50 kg

DRUGS (9)
  1. IRESSA [Suspect]
     Indication: LUNG ADENOCARCINOMA
     Route: 048
     Dates: start: 20081211, end: 20090305
  2. LOXONIN [Concomitant]
     Route: 048
     Dates: start: 20060814
  3. JU-KAMA [Concomitant]
     Route: 048
     Dates: start: 20060814
  4. CYTOTEC [Concomitant]
     Route: 048
     Dates: start: 20070929
  5. OXYCONTIN [Concomitant]
     Route: 048
     Dates: start: 20071005
  6. OXINORM [Concomitant]
     Route: 048
     Dates: start: 20071005
  7. DEPAS [Concomitant]
     Route: 048
     Dates: start: 20071005
  8. PRIMPERAN [Concomitant]
     Route: 048
     Dates: start: 20071204
  9. BONALON [Concomitant]
     Route: 048
     Dates: start: 20090203

REACTIONS (1)
  - CYSTITIS HAEMORRHAGIC [None]
